FAERS Safety Report 9912487 (Version 2)
Quarter: 2014Q1

REPORT INFORMATION
  Report Type: Report from Study
  Country: FR (occurrence: FR)
  Receive Date: 20140220
  Receipt Date: 20140227
  Transmission Date: 20141002
  Serious: Yes (Other)
  Sender: FDA-Public Use
  Company Number: FR-BRISTOL-MYERS SQUIBB COMPANY-20212486

PATIENT
  Age: 78 Year
  Sex: Female

DRUGS (1)
  1. YERVOY [Suspect]
     Dosage: NO OF INF:3

REACTIONS (1)
  - Cholestasis [Unknown]
